FAERS Safety Report 5192532-6 (Version None)
Quarter: 2006Q4

REPORT INFORMATION
  Report Type: 
  Country: None (occurrence: None)
  Receive Date: 20061220
  Receipt Date: 20061206
  Transmission Date: 20070319
  Serious: Yes (Hospitalization)
  Sender: FDA-Public Use
  Company Number: 2006RR-04833

PATIENT
  Age: 51 Year
  Sex: Male

DRUGS (5)
  1. FLUOXETINE [Suspect]
     Indication: DEPRESSION
     Dosage: SEE IMAGE
  2. BUPROPION HCL [Concomitant]
     Indication: ASTHENIA
     Dosage: 150 MG, QD
  3. BROMAZEPAM [Concomitant]
  4. ALPRAZOLAM [Concomitant]
  5. CLONAZEPAM [Concomitant]

REACTIONS (7)
  - ASTHENIA [None]
  - DELIRIUM [None]
  - DISORIENTATION [None]
  - DISTURBANCE IN ATTENTION [None]
  - DRUG INTERACTION [None]
  - FATIGUE [None]
  - MEMORY IMPAIRMENT [None]
